FAERS Safety Report 8281406-X (Version None)
Quarter: 2012Q2

REPORT INFORMATION
  Report Type: 
  Country: None (occurrence: None)
  Receive Date: 20120413
  Receipt Date: 20120409
  Transmission Date: 20120825
  Serious: Yes (Other)
  Sender: FDA-Public Use
  Company Number: US-PFIZER INC-2012056749

PATIENT
  Sex: Female

DRUGS (4)
  1. MYSOLINE [Concomitant]
     Dosage: UNK
  2. VALIUM [Suspect]
     Dosage: UNK
     Dates: end: 20120229
  3. PHENOBARBITAL TAB [Suspect]
     Dosage: UNK
  4. DILANTIN-125 [Suspect]
     Indication: CONVULSION
     Dosage: UNK
     Route: 048
     Dates: start: 19720101

REACTIONS (2)
  - GAIT DISTURBANCE [None]
  - ANTICONVULSANT DRUG LEVEL INCREASED [None]
